FAERS Safety Report 9250467 (Version 2)
Quarter: 2013Q2

REPORT INFORMATION
  Report Type: Spontaneous
  Country: US (occurrence: US)
  Receive Date: 20130424
  Receipt Date: 20130603
  Transmission Date: 20140414
  Serious: No
  Sender: FDA-Public Use
  Company Number: US-009507513-1304USA012559

PATIENT
  Sex: Female

DRUGS (5)
  1. ASMANEX TWISTHALER [Suspect]
     Dosage: 1 DF, QD
     Route: 055
  2. DOXYCYCLINE [Concomitant]
  3. IODINE [Concomitant]
  4. NITROFURANTOIN [Concomitant]
  5. PENICILLIN (UNSPECIFIED) [Concomitant]

REACTIONS (3)
  - Drug dose omission [Unknown]
  - Device malfunction [Unknown]
  - No adverse event [Unknown]
